FAERS Safety Report 5025545-5 (Version None)
Quarter: 2006Q2

REPORT INFORMATION
  Report Type: 
  Country: None (occurrence: None)
  Receive Date: 20060426
  Receipt Date: 20060228
  Transmission Date: 20061013
  Serious: Yes (Other)
  Sender: FDA-Public Use
  Company Number: 200617960

PATIENT
  Age: 40 Year
  Sex: Female

DRUGS (1)
  1. LYRICA [Suspect]
     Indication: PAIN
     Dosage: 150 MG (75 MG, 2 IN 1 D)

REACTIONS (1)
  - URINARY RETENTION [None]
